FAERS Safety Report 10094293 (Version 1)
Quarter: 2014Q2

REPORT INFORMATION
  Report Type: Spontaneous
  Country: DK (occurrence: DK)
  Receive Date: 20140422
  Receipt Date: 20140422
  Transmission Date: 20141212
  Serious: Yes (Congenital Anomaly, Other)
  Sender: FDA-Public Use
  Company Number: DK-RANBAXY-2014R1-80533

PATIENT
  Sex: 0

DRUGS (1)
  1. FLUOXETINE [Suspect]
     Indication: PRODUCT USED FOR UNKNOWN INDICATION
     Dosage: UNK
     Route: 064

REACTIONS (3)
  - Cardiac septal defect [Unknown]
  - Foetal exposure during pregnancy [Recovered/Resolved]
  - Multiple congenital abnormalities [Unknown]
